FAERS Safety Report 4363416-8 (Version None)
Quarter: 2004Q2

REPORT INFORMATION
  Report Type: 
  Country: None (occurrence: None)
  Receive Date: 20040517
  Receipt Date: 20040309
  Transmission Date: 20050107
  Serious: No
  Sender: FDA-Public Use
  Company Number: S04-USA-01575-01

PATIENT
  Age: 93 Year
  Sex: Male

DRUGS (11)
  1. NAMENDA [Suspect]
     Indication: DEMENTIA ALZHEIMER'S TYPE
     Dosage: 5 MG BID PO
     Route: 048
     Dates: start: 20040101
  2. NAMENDA [Suspect]
     Indication: DEMENTIA ALZHEIMER'S TYPE
     Dosage: 5 MG QD PO
     Route: 048
     Dates: start: 20040101, end: 20040101
  3. COUMADIN [Concomitant]
  4. ATENOLOL [Concomitant]
  5. NIFEDIPINE [Concomitant]
  6. LISINOPRIL [Concomitant]
  7. NITRGLYCERIN TRANSDERMAL SYSTEM [Concomitant]
  8. ZOCOR [Concomitant]
  9. TERAZOSIN HCL [Concomitant]
  10. TRICOR [Concomitant]
  11. ARICEPT [Concomitant]

REACTIONS (1)
  - DYSKINESIA [None]
